FAERS Safety Report 12693314 (Version 1)
Quarter: 2016Q3

REPORT INFORMATION
  Report Type: Spontaneous
  Country: FR (occurrence: FR)
  Receive Date: 20160829
  Receipt Date: 20160829
  Transmission Date: 20161109
  Serious: Yes (Hospitalization)
  Sender: FDA-Public Use
  Company Number: FR-BAXTER-2016BAX043590

PATIENT
  Age: 59 Year
  Sex: Male
  Weight: 72 kg

DRUGS (20)
  1. UROMITEXAN 600 MG, COMPRIM? [Suspect]
     Active Substance: MESNA
     Indication: CHEMOTHERAPY
     Dosage: TWICE ON DAY 1
     Route: 048
     Dates: start: 20160211
  2. ENDOXAN 1000 MG, POUDRE POUR SOLUTION INJECTABLE [Suspect]
     Active Substance: CYCLOPHOSPHAMIDE
     Indication: CHEMOTHERAPY
     Dosage: IV INFUSION ON DAY 1
     Route: 042
     Dates: start: 20160211
  3. BLEOMYCIN [Suspect]
     Active Substance: BLEOMYCIN SULFATE
     Dosage: IV INFUSION ON DAY 5
     Route: 042
  4. POLARAMINE [Suspect]
     Active Substance: DEXCHLORPHENIRAMINE MALEATE
     Dosage: BY SLOW IV ON DAY 5
     Route: 042
  5. ELDISINE [Suspect]
     Active Substance: VINDESINE SULFATE
     Indication: CHEMOTHERAPY
     Dosage: IV INFUSION ON DAY 1
     Route: 042
     Dates: start: 20160211
  6. POLARAMINE [Suspect]
     Active Substance: DEXCHLORPHENIRAMINE MALEATE
     Indication: CHEMOTHERAPY
     Dosage: TWICE BY SLOW IV ON DAY 1
     Route: 042
     Dates: start: 20160211
  7. METHYLPREDNISOLONE. [Suspect]
     Active Substance: METHYLPREDNISOLONE
     Indication: CHEMOTHERAPY
     Dosage: IV INFUSION ON DAY 1
     Route: 042
     Dates: start: 20160211
  8. MABTHERA [Suspect]
     Active Substance: RITUXIMAB
     Indication: CHEMOTHERAPY
     Dosage: IV INFUSION ON DAY 1
     Route: 042
     Dates: start: 20160211
  9. PARACETAMOL [Suspect]
     Active Substance: ACETAMINOPHEN
     Indication: CHEMOTHERAPY
     Dosage: IV INFUSION ON DAY 1
     Route: 042
     Dates: start: 20160211
  10. ONDANSETRON ACCORD [Suspect]
     Active Substance: ONDANSETRON
     Indication: CHEMOTHERAPY
     Dosage: IV INFUSION, TWICE ON DAY 1
     Route: 042
     Dates: start: 20160211
  11. DOXORUBICIN TEVA [Suspect]
     Active Substance: DOXORUBICIN
     Indication: CHEMOTHERAPY
     Dosage: STRENGTH: 200 MG/100 ML; IV INFUSION ON DAY 1
     Route: 042
     Dates: start: 20160211
  12. METHYLPREDNISOLONE. [Suspect]
     Active Substance: METHYLPREDNISOLONE
     Dosage: IV INFUSION ON DAY 5
     Route: 042
  13. LEDERFOLINE [Suspect]
     Active Substance: LEUCOVORIN CALCIUM
     Indication: PRODUCT USED FOR UNKNOWN INDICATION
     Route: 065
  14. METHOTREXATE BIODIM [Suspect]
     Active Substance: METHOTREXATE
     Indication: CHEMOTHERAPY
     Dosage: ON DAY 1
     Route: 037
     Dates: start: 20160211
  15. ZYLORIC [Suspect]
     Active Substance: ALLOPURINOL
     Indication: PROPHYLAXIS
     Route: 065
  16. MESNA EG [Suspect]
     Active Substance: MESNA
     Indication: CHEMOTHERAPY
     Dosage: SOLUTION FOR INJECTION/INFUSION, IV INFUSION ON DAY 1
     Route: 042
     Dates: start: 20160211
  17. ZELITREX [Suspect]
     Active Substance: VALACYCLOVIR HYDROCHLORIDE
     Indication: INFECTION PROPHYLAXIS
     Route: 065
  18. BACTRIM [Suspect]
     Active Substance: SULFAMETHOXAZOLE\TRIMETHOPRIM
     Indication: INFECTION PROPHYLAXIS
     Route: 065
  19. BLEOMYCIN [Suspect]
     Active Substance: BLEOMYCIN SULFATE
     Indication: CHEMOTHERAPY
     Dosage: IV INFUSION ON DAY 1
     Route: 042
     Dates: start: 20160211
  20. ELDISINE [Suspect]
     Active Substance: VINDESINE SULFATE
     Dosage: IV INFUSION ON DAY 5
     Route: 042

REACTIONS (3)
  - Stomatitis [Recovered/Resolved]
  - Febrile neutropenia [Recovered/Resolved]
  - Weight decreased [Recovered/Resolved]

NARRATIVE: CASE EVENT DATE: 20160219
